FAERS Safety Report 7903512-9 (Version None)
Quarter: 2011Q4

REPORT INFORMATION
  Report Type: 
  Country: None (occurrence: None)
  Receive Date: 20111103
  Receipt Date: 20111024
  Transmission Date: 20120403
  Serious: Yes (Other)
  Sender: FDA-Public Use
  Company Number: DSA_48085_2011

PATIENT
  Age: 54 Year
  Sex: Male

DRUGS (1)
  1. BUPROPION HYDROCHLORIDE [Suspect]
     Indication: DEPRESSION
     Dosage: (300 MG , DAILY ORAL)
     Route: 048
     Dates: start: 20090130, end: 20110601

REACTIONS (1)
  - RESTLESS LEGS SYNDROME [None]
